FAERS Safety Report 6518249-0 (Version None)
Quarter: 2009Q4

REPORT INFORMATION
  Report Type: 
  Country: None (occurrence: None)
  Receive Date: 20091223
  Receipt Date: 20091223
  Transmission Date: 20100525
  Serious: No
  Sender: FDA-Public Use
  Company Number: None

PATIENT
  Age: 61 Year
  Sex: Male
  Weight: 83.9154 kg

DRUGS (1)
  1. ATORVASTATIN CALCIUM [Suspect]
     Indication: ANGIOPLASTY
     Dosage: 80 MG DAILY PILL
     Dates: start: 20090806, end: 20090824

REACTIONS (2)
  - ARTHRALGIA [None]
  - MYALGIA [None]
